FAERS Safety Report 5755244-3 (Version None)
Quarter: 2008Q2

REPORT INFORMATION
  Report Type: 
  Country: None (occurrence: None)
  Receive Date: 20080602
  Receipt Date: 20080520
  Transmission Date: 20081010
  Serious: Yes (Other)
  Sender: FDA-Public Use
  Company Number: AU-AMGEN-US280709

PATIENT
  Sex: Male

DRUGS (6)
  1. PANITUMUMAB [Suspect]
     Indication: COLORECTAL CANCER
     Route: 042
     Dates: start: 20080201
  2. CODEINE SUL TAB [Concomitant]
     Route: 048
     Dates: start: 20080519
  3. ACETAMINOPHEN W/ CODEINE [Concomitant]
     Route: 048
     Dates: start: 20080514
  4. IMODIUM [Concomitant]
     Route: 048
     Dates: start: 20080510
  5. MAGMIN [Concomitant]
     Route: 048
     Dates: start: 20080505
  6. DIFFLAM [Concomitant]
     Route: 048
     Dates: start: 20080317

REACTIONS (1)
  - PULMONARY EMBOLISM [None]
